FAERS Safety Report 9531739 (Version 2)
Quarter: 2013Q4

REPORT INFORMATION
  Report Type: Spontaneous
  Country: US (occurrence: US)
  Receive Date: 20130918
  Receipt Date: 20131113
  Transmission Date: 20140711
  Serious: No
  Sender: FDA-Public Use
  Company Number: US-PFIZER INC-2013265259

PATIENT
  Sex: Female

DRUGS (2)
  1. NORVASC [Suspect]
     Indication: HYPERTENSION
     Dosage: 10 MG, 1X/DAY (1 TAB QD)
     Route: 048
     Dates: start: 20130705
  2. COZAAR [Concomitant]
     Dosage: 50 MG, 1X/DAY (1 TAB QD)

REACTIONS (1)
  - Feeling abnormal [Unknown]
